FAERS Safety Report 17984146 (Version 1)
Quarter: 2020Q3

REPORT INFORMATION
  Report Type: Spontaneous
  Country: FR (occurrence: FR)
  Receive Date: 20200706
  Receipt Date: 20200706
  Transmission Date: 20201103
  Serious: Yes (Hospitalization)
  Sender: FDA-Public Use
  Company Number: FR-TEVA-2020-FR-1795570

PATIENT
  Age: 79 Year
  Sex: Female
  Weight: 75 kg

DRUGS (11)
  1. EMEND [Suspect]
     Active Substance: APREPITANT
     Indication: NAUSEA
     Dosage: UNKNOWN
     Route: 048
     Dates: start: 20200428, end: 20200430
  2. MIRTAZAPINE. [Concomitant]
     Active Substance: MIRTAZAPINE
     Dosage: 15 MG
     Route: 048
  3. COLD CREAM NATUREL ROCHE POSAY, CR?ME [Concomitant]
     Dosage: UNKNOWN
     Route: 003
     Dates: start: 202002
  4. ZYRTEC [Suspect]
     Active Substance: CETIRIZINE HYDROCHLORIDE
     Indication: PRURITUS
     Dosage: 20 MG
     Route: 048
     Dates: start: 202003, end: 20200504
  5. METHOTREXATE. [Suspect]
     Active Substance: METHOTREXATE
     Indication: CUTANEOUS T-CELL LYMPHOMA
     Dosage: 17.5 MG
     Route: 058
     Dates: start: 202002, end: 20200501
  6. DERMOVAL [Concomitant]
     Dosage: UNKNOWN
     Route: 003
     Dates: start: 202002
  7. ELIQUIS [Concomitant]
     Active Substance: APIXABAN
     Indication: ATRIAL FIBRILLATION
     Dosage: 10 MG
     Route: 048
  8. ORAMORPH [Suspect]
     Active Substance: MORPHINE SULFATE
     Indication: PAIN
     Dosage: UNKNOWN
     Route: 048
     Dates: start: 202003
  9. LAROXYL [Suspect]
     Active Substance: AMITRIPTYLINE HYDROCHLORIDE
     Dosage: 15 GTT
     Route: 048
     Dates: start: 202002
  10. SPECIAFOLDINE [Concomitant]
     Active Substance: FOLIC ACID
     Indication: VITAMIN SUPPLEMENTATION
     Dosage: 15 MG
     Route: 048
     Dates: start: 202002, end: 20200504
  11. AERIUS (DESLORATADINE) [Suspect]
     Active Substance: DESLORATADINE
     Indication: PRURITUS
     Dosage: 10 MG
     Route: 048
     Dates: start: 202003, end: 20200504

REACTIONS (1)
  - Confusional state [Recovering/Resolving]

NARRATIVE: CASE EVENT DATE: 202004
